FAERS Safety Report 12554305 (Version 1)
Quarter: 2016Q3

REPORT INFORMATION
  Report Type: Spontaneous
  Country: US (occurrence: US)
  Receive Date: 20160713
  Receipt Date: 20160713
  Transmission Date: 20161109
  Serious: No
  Sender: FDA-Public Use
  Company Number: US-ROCHE-1712266

PATIENT
  Sex: Female

DRUGS (4)
  1. PERJETA [Suspect]
     Active Substance: PERTUZUMAB
     Indication: METASTASIS
     Dosage: 2 VIALS
     Route: 065
  2. TAXOTERE [Concomitant]
     Active Substance: DOCETAXEL
     Indication: METASTASIS
  3. HERCEPTIN [Suspect]
     Active Substance: TRASTUZUMAB
     Indication: METASTASIS
     Route: 065
  4. ABRAXANE [Concomitant]
     Active Substance: PACLITAXEL

REACTIONS (3)
  - Chills [Unknown]
  - Pyrexia [Unknown]
  - Hypertension [Unknown]
